FAERS Safety Report 8551275-9 (Version None)
Quarter: 2012Q3

REPORT INFORMATION
  Report Type: 
  Country: None (occurrence: None)
  Receive Date: 20120730
  Receipt Date: 20120213
  Transmission Date: 20120928
  Serious: Yes (Other)
  Sender: FDA-Public Use
  Company Number: US-ALLERGAN-1202435US

PATIENT
  Age: 77 Year
  Sex: Female

DRUGS (1)
  1. LUMIGAN [Suspect]
     Indication: INTRAOCULAR PRESSURE INCREASED
     Dosage: UNK
     Route: 047
     Dates: start: 20010101, end: 20040101

REACTIONS (4)
  - ADVERSE DRUG REACTION [None]
  - VISUAL IMPAIRMENT [None]
  - EYE IRRITATION [None]
  - CATARACT [None]
